FAERS Safety Report 19031568 (Version 1)
Quarter: 2021Q1

REPORT INFORMATION
  Report Type: Spontaneous
  Country: US (occurrence: US)
  Receive Date: 20210319
  Receipt Date: 20210319
  Transmission Date: 20210420
  Serious: No
  Sender: FDA-Public Use
  Company Number: US-009507513-2103USA003719

PATIENT
  Age: 40 Year
  Sex: Female

DRUGS (7)
  1. PRIMAXIN IV [Concomitant]
     Active Substance: CILASTATIN SODIUM\IMIPENEM
     Indication: SKIN BACTERIAL INFECTION
  2. SIVEXTRO [Suspect]
     Active Substance: TEDIZOLID PHOSPHATE
     Indication: SKIN BACTERIAL INFECTION
  3. PRIMAXIN IV [Concomitant]
     Active Substance: CILASTATIN SODIUM\IMIPENEM
     Indication: MYCOBACTERIAL INFECTION
     Dosage: 500 MILLIGRAM, Q6H
     Dates: start: 2016, end: 2016
  4. AMIKACIN. [Concomitant]
     Active Substance: AMIKACIN
     Indication: MYCOBACTERIAL INFECTION
     Dosage: 1500 MILLIGRAM, TIW
     Route: 042
     Dates: start: 2016, end: 2016
  5. AMIKACIN. [Concomitant]
     Active Substance: AMIKACIN
     Indication: SKIN BACTERIAL INFECTION
  6. SIVEXTRO [Suspect]
     Active Substance: TEDIZOLID PHOSPHATE
     Indication: MYCOBACTERIAL INFECTION
     Dosage: UNK
     Dates: start: 2016, end: 2016
  7. VENLAFAXINE HYDROCHLORIDE. [Concomitant]
     Active Substance: VENLAFAXINE HYDROCHLORIDE
     Indication: DEPRESSION
     Dosage: UNK

REACTIONS (1)
  - Off label use [Unknown]

NARRATIVE: CASE EVENT DATE: 2016
